FAERS Safety Report 12751361 (Version 1)
Quarter: 2016Q3

REPORT INFORMATION
  Report Type: Spontaneous
  Country: US (occurrence: US)
  Receive Date: 20160916
  Receipt Date: 20160916
  Transmission Date: 20161109
  Serious: Yes (Hospitalization, Other)
  Sender: FDA-Public Use
  Company Number: None

PATIENT
  Age: 22 Year
  Sex: Female
  Weight: 52.16 kg

DRUGS (3)
  1. NEXPLANON [Suspect]
     Active Substance: ETONOGESTREL
     Indication: CONTRACEPTION
     Dosage: 1 DEVICE EVERY 3 YEARS IMPLANTED IN MY ARM
     Dates: start: 20160825, end: 20160826
  2. DOXYCYCLINE. [Concomitant]
     Active Substance: DOXYCYCLINE
  3. PERCOCET [Concomitant]
     Active Substance: ACETAMINOPHEN\OXYCODONE HYDROCHLORIDE

REACTIONS (8)
  - Device difficult to use [None]
  - Erythema [None]
  - Skin warm [None]
  - Wound haemorrhage [None]
  - Chest pain [None]
  - Pain in extremity [None]
  - Pyrexia [None]
  - Migration of implanted drug [None]

NARRATIVE: CASE EVENT DATE: 20160825
